FAERS Safety Report 20208913 (Version 1)
Quarter: 2021Q4

REPORT INFORMATION
  Report Type: Spontaneous
  Country: CN (occurrence: CN)
  Receive Date: 20211220
  Receipt Date: 20211220
  Transmission Date: 20220304
  Serious: Yes (Other)
  Sender: FDA-Public Use
  Company Number: CN-PFIZER INC-202101752262

PATIENT
  Age: 53 Year
  Sex: Male
  Weight: 80 kg

DRUGS (3)
  1. SOLU-MEDROL [Suspect]
     Active Substance: METHYLPREDNISOLONE SODIUM SUCCINATE
     Indication: Endocrine ophthalmopathy
     Dosage: 0.5 G, 1X/DAY
     Route: 041
     Dates: start: 20211202, end: 20211203
  2. OMEPRAZOLE [Concomitant]
     Active Substance: OMEPRAZOLE
     Indication: Gastrointestinal mucosal disorder
     Dosage: 20 MG, 1X/DAY
     Route: 048
     Dates: start: 20211202, end: 20211203
  3. SODIUM CHLORIDE [Concomitant]
     Active Substance: SODIUM CHLORIDE
     Indication: Endocrine ophthalmopathy
     Dosage: 500 ML, 1X/DAY
     Route: 041
     Dates: start: 20211202, end: 20211203

REACTIONS (2)
  - Tachycardia [Recovering/Resolving]
  - Chest pain [Recovering/Resolving]

NARRATIVE: CASE EVENT DATE: 20211203
